FAERS Safety Report 14262122 (Version 1)
Quarter: 2017Q4

REPORT INFORMATION
  Report Type: Spontaneous
  Country: US (occurrence: US)
  Receive Date: 20171208
  Receipt Date: 20171208
  Transmission Date: 20180321
  Serious: No
  Sender: FDA-Public Use
  Company Number: US-KYOWAKIRIN-2016BKK107381

PATIENT

DRUGS (2)
  1. SANCUSO [Suspect]
     Active Substance: GRANISETRON
     Dosage: 1 DF,1X/2 WEEKS
     Route: 062
     Dates: start: 20161115
  2. SANCUSO [Suspect]
     Active Substance: GRANISETRON
     Indication: PROPHYLAXIS OF NAUSEA AND VOMITING
     Dosage: 1 DF, 1X/2 WEEKS
     Route: 062

REACTIONS (8)
  - Somnolence [Unknown]
  - Inappropriate schedule of drug administration [Unknown]
  - Nausea [Unknown]
  - Chills [Recovering/Resolving]
  - Presyncope [None]
  - Drug administered at inappropriate site [Unknown]
  - Feeling abnormal [Recovering/Resolving]
  - Malaise [None]

NARRATIVE: CASE EVENT DATE: 2016
